FAERS Safety Report 8990780 (Version 4)
Quarter: 2013Q3

REPORT INFORMATION
  Report Type: Report from Study
  Country: JP (occurrence: JP)
  Receive Date: 20121228
  Receipt Date: 20130718
  Transmission Date: 20140515
  Serious: Yes (Hospitalization)
  Sender: FDA-Public Use
  Company Number: JP-ROCHE-1170799

PATIENT
  Age: 83 Year
  Sex: Male

DRUGS (15)
  1. METHOXY POLYETHYLENE GLYCOL-EPOETIN BETA [Suspect]
     Indication: NEPHROGENIC ANAEMIA
     Route: 058
     Dates: start: 20120831, end: 20120928
  2. METHOXY POLYETHYLENE GLYCOL-EPOETIN BETA [Suspect]
     Indication: NEPHROGENIC ANAEMIA
     Route: 058
     Dates: start: 20121109, end: 20121109
  3. METHOXY POLYETHYLENE GLYCOL-EPOETIN BETA [Suspect]
     Indication: NEPHROGENIC ANAEMIA
     Route: 042
     Dates: start: 20121218, end: 20121226
  4. PARIET [Concomitant]
     Route: 048
  5. PERSANTIN [Concomitant]
     Route: 048
  6. SELBEX [Concomitant]
     Route: 048
  7. BLOPRESS [Concomitant]
     Route: 048
     Dates: end: 20121123
  8. ZYLORIC [Concomitant]
     Route: 048
     Dates: end: 20121123
  9. AMLODIN [Concomitant]
     Route: 048
  10. ROCALTROL [Concomitant]
     Route: 048
     Dates: end: 20121116
  11. KETAS [Concomitant]
     Route: 048
     Dates: end: 20121123
  12. KAYEXALATE [Concomitant]
     Route: 048
  13. FLUITRAN [Concomitant]
  14. DIART [Concomitant]
  15. BAYASPIRIN [Concomitant]

REACTIONS (3)
  - Pleural effusion [Recovered/Resolved]
  - Renal impairment [Not Recovered/Not Resolved]
  - Hypertension [Unknown]
